FAERS Safety Report 12246432 (Version 5)
Quarter: 2016Q2

REPORT INFORMATION
  Report Type: Report from Study
  Country: DE (occurrence: DE)
  Receive Date: 20160407
  Receipt Date: 20160627
  Transmission Date: 20160815
  Serious: Yes (Hospitalization)
  Sender: FDA-Public Use
  Company Number: DE-B.I. PHARMACEUTICALS,INC./RIDGEFIELD-2015-BI-42987DE

PATIENT
  Age: 79 Year
  Sex: Female
  Weight: 58.5 kg

DRUGS (11)
  1. NITRO LINGULA [Concomitant]
     Indication: PRODUCT USED FOR UNKNOWN INDICATION
     Dosage: FORMULATION: SPRAY
     Route: 060
     Dates: start: 20150824
  2. IMODIUM [Concomitant]
     Active Substance: LOPERAMIDE HYDROCHLORIDE
     Indication: PROPHYLAXIS
     Route: 048
     Dates: start: 20150723
  3. METOPROLOL. [Concomitant]
     Active Substance: METOPROLOL
     Indication: PRE-EXISTING DISEASE
     Dosage: 47.5 MG
     Route: 048
  4. LANSOPRAZOL [Concomitant]
     Active Substance: LANSOPRAZOLE
     Indication: PROPHYLAXIS
     Dosage: 30 MG
     Route: 048
  5. TAMOXIFEN [Concomitant]
     Active Substance: TAMOXIFEN
     Indication: PRE-EXISTING DISEASE
     Dosage: 20 MG
     Route: 048
     Dates: start: 20110515
  6. VALSARTAN. [Concomitant]
     Active Substance: VALSARTAN
     Indication: PRE-EXISTING DISEASE
     Dosage: 160 MG
     Route: 048
  7. GILOTRIF [Suspect]
     Active Substance: AFATINIB
     Indication: NON-SMALL CELL LUNG CANCER
     Dosage: 30 MG
     Route: 048
     Dates: start: 20150723, end: 20150811
  8. GILOTRIF [Suspect]
     Active Substance: AFATINIB
     Dosage: 20 MG
     Route: 048
     Dates: start: 20150811, end: 20160321
  9. CLEXANE MULTI [Concomitant]
     Active Substance: ENOXAPARIN SODIUM
     Indication: PRE-EXISTING DISEASE
     Dosage: 100 MG
     Route: 042
  10. FUROSEMIDE. [Concomitant]
     Active Substance: FUROSEMIDE
     Indication: PRE-EXISTING DISEASE
     Dosage: 40 MG
     Route: 048
  11. ONDANSETRON [Concomitant]
     Active Substance: ONDANSETRON
     Indication: PRODUCT USED FOR UNKNOWN INDICATION
     Dosage: 8 MG
     Route: 048
     Dates: start: 20150806

REACTIONS (15)
  - Angina pectoris [Not Recovered/Not Resolved]
  - Amnesia [Not Recovered/Not Resolved]
  - Oropharyngeal pain [Recovered/Resolved]
  - Dry skin [Not Recovered/Not Resolved]
  - Diarrhoea [Recovered/Resolved]
  - Vomiting [Recovered/Resolved]
  - Spinal fracture [Not Recovered/Not Resolved]
  - Mucosal infection [Not Recovered/Not Resolved]
  - Back pain [Not Recovered/Not Resolved]
  - Upper-airway cough syndrome [Not Recovered/Not Resolved]
  - Nausea [Recovered/Resolved]
  - General physical health deterioration [Recovered/Resolved]
  - Decreased appetite [Recovered/Resolved]
  - Abdominal pain [Not Recovered/Not Resolved]
  - Weight decreased [Recovered/Resolved]

NARRATIVE: CASE EVENT DATE: 201507
